FAERS Safety Report 23952219 (Version 3)
Quarter: 2024Q3

REPORT INFORMATION
  Report Type: Spontaneous
  Country: ES (occurrence: ES)
  Receive Date: 20240607
  Receipt Date: 20240715
  Transmission Date: 20241017
  Serious: Yes (Death, Hospitalization, Other)
  Sender: PFIZER
  Company Number: ES-PFM-2024-02008

PATIENT
  Age: 47 Year
  Sex: Female

DRUGS (4)
  1. ENCORAFENIB [Suspect]
     Active Substance: ENCORAFENIB
     Indication: BRAF gene mutation
     Dosage: 450 MG/DAILY (6 CAPS/DAY)
     Route: 065
     Dates: start: 20220901, end: 20240308
  2. ENCORAFENIB [Suspect]
     Active Substance: ENCORAFENIB
     Indication: Malignant melanoma
  3. BINIMETINIB [Suspect]
     Active Substance: BINIMETINIB
     Indication: BRAF gene mutation
     Dosage: 90 MG/DAILY (3 TABLETS/DAY EVERY 12H)
     Route: 065
     Dates: start: 20220901, end: 20240308
  4. BINIMETINIB [Suspect]
     Active Substance: BINIMETINIB
     Indication: Malignant melanoma

REACTIONS (13)
  - Death [Fatal]
  - Presyncope [Unknown]
  - General physical health deterioration [Unknown]
  - Somnolence [Unknown]
  - Dissociation [Unknown]
  - Incontinence [Unknown]
  - Dysphagia [Unknown]
  - Fatigue [Unknown]
  - Muscular weakness [Unknown]
  - Colitis [Recovering/Resolving]
  - Neoplasm progression [Unknown]
  - Constipation [Recovered/Resolved]
  - Diarrhoea [Recovered/Resolved]

NARRATIVE: CASE EVENT DATE: 20240301
